FAERS Safety Report 4527252-1 (Version None)
Quarter: 2004Q4

REPORT INFORMATION
  Report Type: 
  Country: None (occurrence: None)
  Receive Date: 20041214
  Receipt Date: 20041214
  Transmission Date: 20050328
  Serious: Yes (Life-Threatening)
  Sender: FDA-Public Use
  Company Number: None

PATIENT
  Sex: Male
  Weight: 101.6057 kg

DRUGS (4)
  1. TOPOTECAN [Suspect]
     Indication: GLIOBLASTOMA MULTIFORME
     Dosage: 0.85MG IVCI QD
     Dates: start: 20040630
  2. THALIDOMIDE [Suspect]
     Dosage: 400 MG QD PO
     Route: 048
     Dates: start: 20040630
  3. LAMICTAL [Concomitant]
  4. DECADRON [Concomitant]

REACTIONS (3)
  - DYSPNOEA [None]
  - INTERSTITIAL LUNG DISEASE [None]
  - PYREXIA [None]
